FAERS Safety Report 17031473 (Version 5)
Quarter: 2020Q1

REPORT INFORMATION
  Report Type: Spontaneous
  Country: US (occurrence: US)
  Receive Date: 20191114
  Receipt Date: 20200219
  Transmission Date: 20200409
  Serious: Yes (Hospitalization)
  Sender: FDA-Public Use
  Company Number: US-PFIZER INC-2019480213

PATIENT
  Age: 77 Year
  Sex: Female
  Weight: 72.57 kg

DRUGS (3)
  1. PREMARIN [Suspect]
     Active Substance: ESTROGENS, CONJUGATED
     Dosage: UNK
  2. PREMARIN [Suspect]
     Active Substance: ESTROGENS, CONJUGATED
     Dosage: UNK, 2X/WEEK (INSERTED TWICE A WEEK)
  3. PREMARIN [Suspect]
     Active Substance: ESTROGENS, CONJUGATED
     Dosage: 1 MG, 2X/WEEK
     Dates: start: 20191206

REACTIONS (6)
  - Malaise [Unknown]
  - Bladder prolapse [Not Recovered/Not Resolved]
  - Cardiac disorder [Unknown]
  - Back disorder [Not Recovered/Not Resolved]
  - Migraine [Unknown]
  - Chronic obstructive pulmonary disease [Unknown]
